FAERS Safety Report 13535818 (Version 3)
Quarter: 2017Q2

REPORT INFORMATION
  Report Type: Report from Study
  Country: US (occurrence: US)
  Receive Date: 20170511
  Receipt Date: 20170607
  Transmission Date: 20170830
  Serious: Yes (Other)
  Sender: FDA-Public Use
  Company Number: PHEH2017US013554

PATIENT
  Age: 52 Year
  Sex: Female

DRUGS (5)
  1. LORAZEPAM. [Concomitant]
     Active Substance: LORAZEPAM
     Indication: PRODUCT USED FOR UNKNOWN INDICATION
     Dosage: 0.5 MG, PRN
     Route: 048
  2. NYSTATIN. [Concomitant]
     Active Substance: NYSTATIN
     Indication: PRODUCT USED FOR UNKNOWN INDICATION
     Route: 065
  3. SERTRALINE [Concomitant]
     Active Substance: SERTRALINE HYDROCHLORIDE
     Indication: PRODUCT USED FOR UNKNOWN INDICATION
     Dosage: 100 MG, BID
     Route: 048
  4. COSENTYX [Suspect]
     Active Substance: SECUKINUMAB
     Indication: PSORIASIS
  5. COSENTYX [Suspect]
     Active Substance: SECUKINUMAB
     Indication: PSORIATIC ARTHROPATHY
     Dosage: 300 MG, QW
     Route: 058
     Dates: start: 20170119, end: 20170220

REACTIONS (10)
  - Pain in jaw [Unknown]
  - Oral pain [Unknown]
  - Swollen tongue [Unknown]
  - Dysphagia [Unknown]
  - Dyspnoea [Unknown]
  - Condition aggravated [Unknown]
  - Anaphylactic reaction [Recovered/Resolved]
  - Eating disorder [Unknown]
  - Aphasia [Unknown]
  - Oral candidiasis [Not Recovered/Not Resolved]

NARRATIVE: CASE EVENT DATE: 20170217
